FAERS Safety Report 22594547 (Version 1)
Quarter: 2023Q2

REPORT INFORMATION
  Report Type: Spontaneous
  Country: US (occurrence: None)
  Receive Date: 20230612
  Receipt Date: 20230612
  Transmission Date: 20230722
  Serious: Yes (Hospitalization)
  Sender: FDA-Public Use
  Company Number: None

PATIENT
  Sex: Female

DRUGS (24)
  1. ADVAIR HFA [Suspect]
     Active Substance: FLUTICASONE PROPIONATE\SALMETEROL XINAFOATE
     Indication: Chronic hepatitis C
  2. LASIX [Suspect]
     Active Substance: FUROSEMIDE
     Indication: Chronic hepatitis C
  3. CLONAZEPAM|LAMOTRIGINE CHEWABLE DISP [Concomitant]
  4. PROMETHAZINE HCL|POTASSIUM IODIDE [Concomitant]
  5. PANTOPRAZOLE SODIUM|SPIRONOLACTONE [Concomitant]
  6. ATORVASTATIN CALCIUM|FUROSEMIDE [Concomitant]
  7. BOTOX|WARFARIN SODIUM [Concomitant]
  8. COREG [Concomitant]
     Active Substance: CARVEDILOL
  9. GABAPENTIN [Concomitant]
     Active Substance: GABAPENTIN
  10. TRAZODONE HYDROCHLORIDE [Concomitant]
     Active Substance: TRAZODONE HYDROCHLORIDE
  11. BUTALBITAL/ACETAMINOPHEN/ [Concomitant]
  12. COUMADIN [Concomitant]
     Active Substance: WARFARIN SODIUM
  13. MONTELUKAST SODIUM [Concomitant]
     Active Substance: MONTELUKAST SODIUM
  14. LORATADINE [Concomitant]
     Active Substance: LORATADINE
  15. MAGNESIUM STEARATE [Concomitant]
     Active Substance: MAGNESIUM STEARATE
  16. BIOTIN [Concomitant]
     Active Substance: BIOTIN
  17. FOLIC ACID [Concomitant]
     Active Substance: FOLIC ACID
  18. TRELEGY ELLIPTA [Concomitant]
     Active Substance: FLUTICASONE FUROATE\UMECLIDINIUM BROMIDE\VILANTEROL TRIFENATATE
  19. OXYCODONE HYDROCHLORIDE [Concomitant]
     Active Substance: OXYCODONE HYDROCHLORIDE
  20. PROMETHAZINE HYDROCHLORIDE [Concomitant]
     Active Substance: PROMETHAZINE HYDROCHLORIDE
  21. METHOCARBAMOL [Concomitant]
     Active Substance: METHOCARBAMOL
  22. WELLBUTRIN SR [Concomitant]
     Active Substance: BUPROPION HYDROCHLORIDE
  23. COREG [Concomitant]
     Active Substance: CARVEDILOL
  24. NARCAN [Suspect]
     Active Substance: NALOXONE HYDROCHLORIDE

REACTIONS (11)
  - Illness [None]
  - Multiple organ dysfunction syndrome [None]
  - Renal disorder [None]
  - Fluid retention [None]
  - Weight decreased [None]
  - Upper respiratory tract infection [None]
  - Hypersensitivity [None]
  - Chest pain [None]
  - Dyspnoea [None]
  - Cardiac failure [None]
  - Blood potassium decreased [None]
